FAERS Safety Report 16451449 (Version 2)
Quarter: 2019Q3

REPORT INFORMATION
  Report Type: Spontaneous
  Country: JP (occurrence: JP)
  Receive Date: 20190619
  Receipt Date: 20190711
  Transmission Date: 20191004
  Serious: Yes (Disabling)
  Sender: FDA-Public Use
  Company Number: JP-BAYER-2019-112371

PATIENT
  Age: 71 Year
  Sex: Male
  Weight: 72 kg

DRUGS (13)
  1. DENOTAS [Suspect]
     Active Substance: CALCIUM CARBONATE\CHOLECALCIFEROL\MAGNESIUM CARBONATE
     Dosage: DAILY DOSE 2 DF
     Route: 048
  2. PROSEXOL [Suspect]
     Active Substance: ETHINYL ESTRADIOL
     Dosage: DAILY DOSE 3 DF
     Route: 048
  3. CYMBALTA [Concomitant]
     Active Substance: DULOXETINE HYDROCHLORIDE
     Indication: PAIN
     Dosage: DAILY DOSE 1 DF
     Route: 048
     Dates: start: 20190307, end: 20190524
  4. NEUTROGIN [Concomitant]
     Active Substance: LENOGRASTIM
     Dosage: DAILY DOSE 4 DF
     Route: 048
  5. XOFIGO [Suspect]
     Active Substance: RADIUM RA-223 DICHLORIDE
     Indication: METASTASES TO BONE
     Dosage: 55KBQ/KG, ONCE
     Route: 042
     Dates: start: 20190318, end: 20190318
  6. XOFIGO [Suspect]
     Active Substance: RADIUM RA-223 DICHLORIDE
     Indication: HORMONE-REFRACTORY PROSTATE CANCER
     Dosage: 55KBQ/KG, ONCE
     Route: 042
     Dates: start: 20190422, end: 20190422
  7. PREDNISOLONE. [Concomitant]
     Active Substance: PREDNISOLONE
     Dosage: UNK
     Dates: start: 20190606
  8. RANMARK [Suspect]
     Active Substance: DENOSUMAB
     Indication: METASTASES TO BONE
     Dosage: UNK
     Route: 042
  9. XOFIGO [Suspect]
     Active Substance: RADIUM RA-223 DICHLORIDE
     Indication: HORMONE-REFRACTORY PROSTATE CANCER
     Dosage: 55KBQ/KG, ONCE
     Route: 042
     Dates: start: 20190218, end: 20190218
  10. LOXOPROFEN [Concomitant]
     Active Substance: LOXOPROFEN
     Dosage: UNK
     Route: 048
  11. FAMOTIDINE. [Concomitant]
     Active Substance: FAMOTIDINE
     Dosage: UNK
     Dates: start: 20190606
  12. XOFIGO [Suspect]
     Active Substance: RADIUM RA-223 DICHLORIDE
     Indication: HORMONE-REFRACTORY PROSTATE CANCER
     Dosage: 55KBQ/KG, ONCE
     Route: 042
     Dates: start: 20190520, end: 20190520
  13. XOFIGO [Suspect]
     Active Substance: RADIUM RA-223 DICHLORIDE
     Indication: HORMONE-REFRACTORY PROSTATE CANCER
     Dosage: 55KBQ/KG, ONCE
     Route: 042
     Dates: start: 20190617, end: 20190617

REACTIONS (2)
  - Hypoaesthesia [Recovering/Resolving]
  - Suture related complication [Not Recovered/Not Resolved]

NARRATIVE: CASE EVENT DATE: 20190524
